FAERS Safety Report 7979928-1 (Version None)
Quarter: 2011Q4

REPORT INFORMATION
  Report Type: 
  Country: None (occurrence: None)
  Receive Date: 20111214
  Receipt Date: 20111130
  Transmission Date: 20120403
  Serious: Yes (Hospitalization)
  Sender: FDA-Public Use
  Company Number: NL-ROCHE-1008717

PATIENT
  Age: 78 Year
  Sex: Male
  Weight: 67 kg

DRUGS (5)
  1. VEMURAFENIB [Suspect]
     Indication: MALIGNANT MELANOMA
     Dosage: LAST DOSE PRIOR TO SAE: 17 OCTOBER 2011
     Route: 048
     Dates: start: 20110819, end: 20111018
  2. METOPROLOL TARTRATE [Concomitant]
  3. DIGOXIN [Concomitant]
  4. ACENOCOUMAROL [Concomitant]
  5. LORAZEPAM [Concomitant]
     Dates: start: 20110820, end: 20111031

REACTIONS (3)
  - INSOMNIA [None]
  - DYSPNOEA [None]
  - RESTLESSNESS [None]
